FAERS Safety Report 8354010-2 (Version None)
Quarter: 2012Q2

REPORT INFORMATION
  Report Type: 
  Country: None (occurrence: None)
  Receive Date: 20120511
  Receipt Date: 20120502
  Transmission Date: 20120825
  Serious: Yes (Hospitalization)
  Sender: FDA-Public Use
  Company Number: DE-PFIZER INC-2012107497

PATIENT
  Age: 70 Year
  Sex: Male

DRUGS (6)
  1. METOPROLOL SUCCINATE [Concomitant]
     Dosage: 2X1/ DAY
  2. NORVASC [Concomitant]
     Dosage: 2/DAY
  3. SUTENT [Suspect]
     Dosage: 1X1/DAY
     Dates: start: 20110406, end: 20120430
  4. PERENTEROL [Concomitant]
     Dosage: 3X1/DAY
  5. OMEPRAZOLE [Concomitant]
     Dosage: 2X1/DAY
  6. RAMIPRIL [Concomitant]
     Dosage: 2.5, 2-0-1/DAY
     Dates: end: 20120430

REACTIONS (3)
  - DIZZINESS [None]
  - RENAL FAILURE ACUTE [None]
  - SYNCOPE [None]
